FAERS Safety Report 11643039 (Version 1)
Quarter: 2015Q4

REPORT INFORMATION
  Report Type: Spontaneous
  Country: US (occurrence: US)
  Receive Date: 20151020
  Receipt Date: 20151020
  Transmission Date: 20160304
  Serious: Yes (Hospitalization)
  Sender: FDA-Public Use
  Company Number: US-ACCORD-034609

PATIENT
  Age: 9 Year
  Sex: Female

DRUGS (14)
  1. SERTRALINE [Suspect]
     Active Substance: SERTRALINE HYDROCHLORIDE
     Indication: ANXIETY
     Dosage: RECEIVED 6.5 MG THEN DOSE INCREASED TO 12.5 MG, 1 TABLET BY MOUTH EVERY MORNING
     Route: 048
  2. OMEPRAZOLE. [Concomitant]
     Active Substance: OMEPRAZOLE
     Dosage: 1 TABLET BY MOUTH EVERY DAY
     Route: 048
  3. NITAZOXANIDE [Concomitant]
     Active Substance: NITAZOXANIDE
     Indication: DIARRHOEA
     Dosage: 10 ML BY MOUTH EVERY 12 H
     Route: 048
  4. DIPHENHYDRAMINE. [Suspect]
     Active Substance: DIPHENHYDRAMINE
     Indication: RASH
     Dosage: 25 MG, 1 TABLET BY MOUTH EVERY?NIGHT AT BEDTIME
     Route: 048
  5. HYOSCYAMINE/HYOSCYAMINE HYDROBROMIDE/HYOSCYAMINE SULFATE [Suspect]
     Active Substance: HYOSCYAMINE
     Indication: DIARRHOEA
     Dosage: 1 TABLET BY MOUTH TWICE?A DAY
     Route: 048
  6. PROMETHAZINE [Suspect]
     Active Substance: PROMETHAZINE\PROMETHAZINE HYDROCHLORIDE
     Indication: NAUSEA
     Dosage: 12.5 MG, 1 TABLET BY MOUTH EVERY 4 H
     Route: 048
  7. CYPROHEPTADINE. [Suspect]
     Active Substance: CYPROHEPTADINE
     Indication: PRODUCT USED FOR UNKNOWN INDICATION
     Dosage: 2 MG, ONE-HALF TABLET BY MOUTH?EVERY DAY
     Route: 048
  8. PARACETAMOL [Concomitant]
     Active Substance: ACETAMINOPHEN
     Dosage: 10 ML BY MOUTH EVERY 4 H
     Route: 048
  9. MIDAZOLAM [Concomitant]
     Active Substance: MIDAZOLAM\MIDAZOLAM HYDROCHLORIDE
     Dosage: 2.09 ML INTRAVENOUSLY ONCE
     Route: 042
  10. FAMOTIDINE. [Concomitant]
     Active Substance: FAMOTIDINE
     Dosage: 10 MG, 1 ML INTRAVENOUSLY EVERY 12 H
     Route: 042
  11. SUCRALFATE. [Concomitant]
     Active Substance: SUCRALFATE
  12. ONDANSETRON [Suspect]
     Active Substance: ONDANSETRON
     Indication: PRODUCT USED FOR UNKNOWN INDICATION
     Dosage: 4 MG, 1 TABLET BY MOUTH EVERY 6 H
     Route: 048
  13. MONTELUKAST [Concomitant]
     Active Substance: MONTELUKAST SODIUM
     Dosage: 1 TABLET BY MOUTH EVERY NIGHT?AT BEDTIME
     Route: 048
  14. MELATONIN [Concomitant]
     Active Substance: MELATONIN
     Dosage: 1 TABLET BY MOUTH EVERY NIGHT?AT BEDTIME
     Route: 048

REACTIONS (1)
  - Anticholinergic syndrome [Recovered/Resolved]
